FAERS Safety Report 7034637-0 (Version None)
Quarter: 2010Q4

REPORT INFORMATION
  Report Type: 
  Country: None (occurrence: None)
  Receive Date: 20101008
  Receipt Date: 20100927
  Transmission Date: 20110411
  Serious: Yes (Hospitalization)
  Sender: FDA-Public Use
  Company Number: ES-SANOFI-AVENTIS-2010SA057862

PATIENT
  Age: 61 Year
  Sex: Male

DRUGS (4)
  1. OXALIPLATIN [Suspect]
     Indication: COLON CANCER
     Route: 042
     Dates: start: 20100421, end: 20100421
  2. XELODA [Suspect]
     Indication: COLON CANCER
     Route: 048
     Dates: start: 20100421
  3. NOVONORM [Concomitant]
     Dates: start: 20080101
  4. DEXAMETHASONE [Concomitant]
     Dates: start: 20100505

REACTIONS (7)
  - GAIT DISTURBANCE [None]
  - GUILLAIN-BARRE SYNDROME [None]
  - MUSCULAR WEAKNESS [None]
  - PARAESTHESIA [None]
  - PARAPARESIS [None]
  - PARESIS [None]
  - POLYNEUROPATHY [None]
